FAERS Safety Report 26034596 (Version 1)
Quarter: 2025Q4

REPORT INFORMATION
  Report Type: Spontaneous
  Country: MX (occurrence: MX)
  Receive Date: 20251112
  Receipt Date: 20251112
  Transmission Date: 20260117
  Serious: Yes (Hospitalization)
  Sender: JOHNSON AND JOHNSON
  Company Number: MX-JNJFOC-20251149542

PATIENT
  Age: 51 Year
  Sex: Male

DRUGS (1)
  1. INFLIXIMAB [Suspect]
     Active Substance: INFLIXIMAB
     Indication: Tuberculosis
     Route: 041

REACTIONS (2)
  - Lymph node tuberculosis [Recovered/Resolved]
  - Pulmonary tuberculosis [Recovered/Resolved]
